FAERS Safety Report 25234925 (Version 2)
Quarter: 2025Q2

REPORT INFORMATION
  Report Type: Spontaneous
  Country: CA (occurrence: CA)
  Receive Date: 20250424
  Receipt Date: 20250620
  Transmission Date: 20250716
  Serious: Yes (Other)
  Sender: PFIZER
  Company Number: CA-PFIZER INC-202400224703

PATIENT
  Age: 15 Year
  Sex: Male

DRUGS (4)
  1. ABRILADA [Suspect]
     Active Substance: ADALIMUMAB-AFZB
     Indication: Ankylosing spondylitis
     Route: 058
     Dates: start: 20240827, end: 2025
  2. CELEBREX [Concomitant]
     Active Substance: CELECOXIB
  3. TYLENOL [Concomitant]
     Active Substance: ACETAMINOPHEN
  4. IBUPROFEN [Concomitant]
     Active Substance: IBUPROFEN

REACTIONS (6)
  - Condition aggravated [Unknown]
  - Spondylolysis [Unknown]
  - Drug ineffective for unapproved indication [Unknown]
  - Cough [Not Recovered/Not Resolved]
  - Spondyloarthropathy [Unknown]
  - Off label use [Unknown]

NARRATIVE: CASE EVENT DATE: 20240101
